FAERS Safety Report 5828751-2 (Version None)
Quarter: 2008Q3

REPORT INFORMATION
  Report Type: 
  Country: None (occurrence: None)
  Receive Date: 20080729
  Receipt Date: 20080718
  Transmission Date: 20090109
  Serious: Yes (Other)
  Sender: FDA-Public Use
  Company Number: URSO-2008-073

PATIENT
  Age: 75 Year
  Sex: Male

DRUGS (5)
  1. URSO 250 [Suspect]
  2. LOSARTAN POTASSIUM [Concomitant]
  3. PAMILCON (PAMIDRONIC ACID) [Concomitant]
  4. OREN-GEDOKU-TO (HERBAL MEDICINE) [Concomitant]
  5. HACHIMI-JIO-GAN (HERBAL MEDICINE) [Concomitant]

REACTIONS (1)
  - INTERSTITIAL LUNG DISEASE [None]
